FAERS Safety Report 4551902-7 (Version None)
Quarter: 2004Q4

REPORT INFORMATION
  Report Type: 
  Country: None (occurrence: None)
  Receive Date: 20041217
  Receipt Date: 20040813
  Transmission Date: 20050328
  Serious: No
  Sender: FDA-Public Use
  Company Number: 2004-BP-06862BP(0)

PATIENT
  Sex: Female

DRUGS (1)
  1. SPIRIVA [Suspect]
     Indication: CHRONIC OBSTRUCTIVE AIRWAYS DISEASE
     Dosage: 36 MCG (18 MCG, 1 PUFF IN AM AND 1 PUFF IN PM), IH
     Route: 055
     Dates: start: 20040601

REACTIONS (1)
  - THROAT IRRITATION [None]
